FAERS Safety Report 8467460-0 (Version None)
Quarter: 2012Q2

REPORT INFORMATION
  Report Type: 
  Country: None (occurrence: None)
  Receive Date: 20120626
  Receipt Date: 20120420
  Transmission Date: 20120825
  Serious: No
  Sender: FDA-Public Use
  Company Number: US-ASTRAZENECA-2012SE26126

PATIENT
  Age: 32 Year
  Sex: Male

DRUGS (13)
  1. CALCIUM CARBONATE [Concomitant]
  2. LORTAB [Concomitant]
  3. LISINOPRIL [Concomitant]
  4. PAXIL [Concomitant]
  5. MAGNESIUM SULFATE [Concomitant]
  6. METYRAPONE [Concomitant]
  7. SYNTHROID [Concomitant]
  8. SPIRONOLACTONE [Concomitant]
  9. CAPRELSA [Suspect]
     Indication: THYROID CANCER
     Route: 048
  10. CALCITRIOL [Concomitant]
  11. KETOCONAZOLE [Concomitant]
  12. METOPROLOL TARTRATE [Concomitant]
  13. DEXAMETHASONE [Concomitant]

REACTIONS (3)
  - BURNING SENSATION [None]
  - ACNE [None]
  - FATIGUE [None]
